FAERS Safety Report 16131157 (Version 1)
Quarter: 2019Q1

REPORT INFORMATION
  Report Type: Spontaneous
  Country: CA (occurrence: CA)
  Receive Date: 20190328
  Receipt Date: 20190328
  Transmission Date: 20190418
  Serious: Yes (Other)
  Sender: FDA-Public Use
  Company Number: CA-ACTELION-A-NJ2019-188103

PATIENT
  Age: 34 Year
  Sex: Female
  Weight: 47.62 kg

DRUGS (12)
  1. CARIPUL [Suspect]
     Active Substance: EPOPROSTENOL
     Indication: PULMONARY ARTERIAL HYPERTENSION
     Dosage: 15000 NG, PER MIN
     Route: 042
     Dates: start: 20160222
  2. PREDNISONE. [Concomitant]
     Active Substance: PREDNISONE
  3. FERAMAX [Concomitant]
     Active Substance: IRON\POLYSACCHARIDES
  4. PLAQUENIL [Concomitant]
     Active Substance: HYDROXYCHLOROQUINE SULFATE
  5. CALTRATE [Concomitant]
     Active Substance: CALCIUM CARBONATE
  6. CELLCEPT [Concomitant]
     Active Substance: MYCOPHENOLATE MOFETIL\MYCOPHENOLATE MOFETIL HYDROCHLORIDE
  7. FOLIC ACID. [Concomitant]
     Active Substance: FOLIC ACID
  8. OPSUMIT [Suspect]
     Active Substance: MACITENTAN
     Indication: PULMONARY ARTERIAL HYPERTENSION
     Dosage: 10 MG, QD
     Route: 048
     Dates: start: 20160614
  9. ADCIRCA [Concomitant]
     Active Substance: TADALAFIL
     Dosage: UNK
  10. TAPAZOLE [Concomitant]
     Active Substance: METHIMAZOLE
  11. ENTECAVIR. [Concomitant]
     Active Substance: ENTECAVIR
  12. SELENIUM [Concomitant]
     Active Substance: SELENIUM

REACTIONS (3)
  - Nausea [Not Recovered/Not Resolved]
  - Uterine polypectomy [Unknown]
  - Decreased appetite [Not Recovered/Not Resolved]

NARRATIVE: CASE EVENT DATE: 20190309
